FAERS Safety Report 4956792-6 (Version None)
Quarter: 2006Q1

REPORT INFORMATION
  Report Type: 
  Country: None (occurrence: None)
  Receive Date: 20060329
  Receipt Date: 20060322
  Transmission Date: 20060701
  Serious: Yes (Other)
  Sender: FDA-Public Use
  Company Number: DK-ABBOTT-06P-044-0328790-00

PATIENT
  Sex: Male

DRUGS (4)
  1. SEVORANE LIQUID FOR INHALATION [Suspect]
     Indication: ANAESTHESIA
     Route: 055
     Dates: start: 20060313, end: 20060313
  2. BUDESONIDE [Concomitant]
     Indication: ASTHMA
     Route: 055
  3. CLAVULIN [Concomitant]
     Indication: OTITIS MEDIA
     Dates: start: 20060309, end: 20060317
  4. OXYGEN [Concomitant]
     Indication: ANAESTHESIA
     Route: 055
     Dates: start: 20060313, end: 20060313

REACTIONS (4)
  - ANAESTHETIC COMPLICATION [None]
  - HYPERSENSITIVITY [None]
  - RASH MORBILLIFORM [None]
  - VOMITING [None]
